FAERS Safety Report 7874493 (Version 3)
Quarter: 2015Q4

REPORT INFORMATION
  Report Type: Spontaneous
  Country: BR (occurrence: BR)
  Receive Date: 20110328
  Receipt Date: 20151105
  Transmission Date: 20160305
  Serious: Yes (Other)
  Sender: FDA-Public Use
  Company Number: PHHY2011BR21729

PATIENT
  Sex: Female

DRUGS (2)
  1. EXELON PATCH [Suspect]
     Active Substance: RIVASTIGMINE
     Indication: PRODUCT USED FOR UNKNOWN INDICATION
     Dosage: 18MG/10CM2
     Route: 062
  2. EXELON PATCH [Suspect]
     Active Substance: RIVASTIGMINE
     Dosage: 9MG/5CM2
     Route: 062

REACTIONS (9)
  - Hypersomnia [Unknown]
  - Memory impairment [Unknown]
  - Hypophagia [Unknown]
  - Femur fracture [Unknown]
  - Aggression [Unknown]
  - Dehydration [Unknown]
  - Disease progression [Unknown]
  - Speech disorder [Unknown]
  - Somnolence [Unknown]
